FAERS Safety Report 4641300-X (Version None)
Quarter: 2005Q2

REPORT INFORMATION
  Report Type: 
  Country: None (occurrence: None)
  Receive Date: 20050420
  Receipt Date: 20050420
  Transmission Date: 20051028
  Serious: Yes (Hospitalization)
  Sender: FDA-Public Use
  Company Number: None

PATIENT

DRUGS (1)
  1. HEPARIN [Suspect]
     Dosage: 5000 U SQ Q 8 HR
     Route: 058

REACTIONS (1)
  - HEPARIN-INDUCED THROMBOCYTOPENIA [None]
